FAERS Safety Report 8457108-3 (Version None)
Quarter: 2012Q2

REPORT INFORMATION
  Report Type: 
  Country: None (occurrence: None)
  Receive Date: 20120614
  Receipt Date: 20120606
  Transmission Date: 20120825
  Serious: Yes (Other)
  Sender: FDA-Public Use
  Company Number: US-2012-10695

PATIENT
  Age: 11 Year
  Sex: Male

DRUGS (4)
  1. CYCLOPHOSPHAMIDE [Suspect]
     Indication: BONE MARROW CONDITIONING REGIMEN
  2. BUSULFAN [Suspect]
     Indication: BONE MARROW CONDITIONING REGIMEN
  3. METHOTREXATE [Concomitant]
  4. CYCLOSPORINE [Concomitant]

REACTIONS (6)
  - ASCITES [None]
  - HYPOTENSION [None]
  - URINE OUTPUT DECREASED [None]
  - POLYSEROSITIS [None]
  - DYSPNOEA [None]
  - OEDEMA PERIPHERAL [None]
